FAERS Safety Report 19626611 (Version 1)
Quarter: 2021Q3

REPORT INFORMATION
  Report Type: Report from Study
  Country: IT (occurrence: IT)
  Receive Date: 20210728
  Receipt Date: 20210728
  Transmission Date: 20211014
  Serious: Yes (Other)
  Sender: FDA-Public Use
  Company Number: IT-TEVA-2021-IT-1935767

PATIENT
  Age: 60 Year
  Sex: Female

DRUGS (2)
  1. CERTOLIZUMAB [Suspect]
     Active Substance: CERTOLIZUMAB
     Indication: RHEUMATOID ARTHRITIS
     Route: 065
  2. METHOTREXATE. [Suspect]
     Active Substance: METHOTREXATE
     Indication: RHEUMATOID ARTHRITIS
     Route: 065

REACTIONS (2)
  - Hepatitis B reactivation [Unknown]
  - Immune reconstitution inflammatory syndrome [Unknown]
